FAERS Safety Report 5600453-7 (Version None)
Quarter: 2008Q1

REPORT INFORMATION
  Report Type: 
  Country: None (occurrence: None)
  Receive Date: 20080111
  Receipt Date: 20070702
  Transmission Date: 20080703
  Serious: Yes (Other)
  Sender: FDA-Public Use
  Company Number: HQWYE310421JUL04

PATIENT
  Age: 56 Year
  Sex: Female

DRUGS (2)
  1. PREMPRO [Suspect]
     Dosage: UNK
  2. PREMPHASE 14/14 [Suspect]
     Dosage: UNK

REACTIONS (2)
  - BREAST CANCER [None]
  - ENDOMETRIAL CANCER [None]
